FAERS Safety Report 23021901 (Version 1)
Quarter: 2023Q4

REPORT INFORMATION
  Report Type: Spontaneous
  Country: IN (occurrence: IN)
  Receive Date: 20231003
  Receipt Date: 20231003
  Transmission Date: 20240110
  Serious: Yes (Hospitalization, Other)
  Sender: FDA-Public Use
  Company Number: IN-SUN PHARMACEUTICAL INDUSTRIES LTD-2023R1-410130

PATIENT
  Age: 39 Year
  Sex: Male

DRUGS (5)
  1. BACLOFEN [Suspect]
     Active Substance: BACLOFEN
     Indication: Spinal cord injury cervical
     Dosage: 60 MILLIGRAM, QD
     Route: 065
  2. BACLOFEN [Suspect]
     Active Substance: BACLOFEN
     Dosage: 30 MILLIGRAM, QD
     Route: 065
  3. TAMSULOSIN [Suspect]
     Active Substance: TAMSULOSIN
     Indication: Spinal cord injury cervical
     Dosage: 0.4 MILLIGRAM, QD
     Route: 065
  4. TIZANIDINE [Suspect]
     Active Substance: TIZANIDINE
     Indication: Spinal cord injury cervical
     Dosage: 12 MILLIGRAM
     Route: 065
  5. TOLPERISONE [Suspect]
     Active Substance: TOLPERISONE
     Indication: Spinal cord injury cervical
     Dosage: 900 MILLIGRAM, QD
     Route: 065

REACTIONS (1)
  - Ankylosing spondylitis [Unknown]
